FAERS Safety Report 5091505-1 (Version None)
Quarter: 2006Q3

REPORT INFORMATION
  Report Type: 
  Country: None (occurrence: None)
  Receive Date: 20060727
  Receipt Date: 20060414
  Transmission Date: 20061208
  Serious: Yes (Other)
  Sender: FDA-Public Use
  Company Number: 2006051783

PATIENT
  Age: 45 Year
  Sex: Female
  Weight: 66.2252 kg

DRUGS (10)
  1. LYRICA [Suspect]
     Indication: NEUROPATHY
     Dosage: 900 MG (300 MG,3 IN 1 D)
     Dates: start: 20060101
  2. NEURONTIN [Concomitant]
  3. SKELAXIN [Concomitant]
  4. NEXIUM [Concomitant]
  5. ALPRAZOLAM [Concomitant]
  6. THYROID TAB [Concomitant]
  7. WARFARIN SODIUM [Concomitant]
  8. VICODIN [Concomitant]
  9. TOPAMAX [Concomitant]
  10. REMERON [Concomitant]

REACTIONS (2)
  - INSOMNIA [None]
  - JOINT SWELLING [None]
